FAERS Safety Report 18483655 (Version 1)
Quarter: 2020Q4

REPORT INFORMATION
  Report Type: Spontaneous
  Country: US (occurrence: US)
  Receive Date: 20201109
  Receipt Date: 20201109
  Transmission Date: 20210114
  Serious: No
  Sender: FDA-Public Use
  Company Number: US-ASTRAZENECA-2020SF44827

PATIENT
  Sex: Female
  Weight: 72.6 kg

DRUGS (9)
  1. BRILINTA [Suspect]
     Active Substance: TICAGRELOR
     Indication: STENT PLACEMENT
     Route: 048
     Dates: start: 20201008
  2. AMLODIPINE [Concomitant]
     Active Substance: AMLODIPINE BESYLATE
  3. PRILOSEC OTC [Suspect]
     Active Substance: OMEPRAZOLE MAGNESIUM
     Indication: GASTROOESOPHAGEAL REFLUX DISEASE
     Route: 048
  4. METOPROLOL TARTRATE. [Suspect]
     Active Substance: METOPROLOL TARTRATE
     Route: 048
  5. LOSARTAN WITH POTASSIUM [Concomitant]
  6. BRILINTA [Suspect]
     Active Substance: TICAGRELOR
     Indication: MYOCARDIAL INFARCTION
     Route: 048
     Dates: start: 20201008
  7. OMEPRAZOLE RX [Suspect]
     Active Substance: OMEPRAZOLE
     Indication: GASTROOESOPHAGEAL REFLUX DISEASE
     Route: 065
     Dates: start: 202010
  8. FLOVENT [Concomitant]
     Active Substance: FLUTICASONE PROPIONATE
  9. OMEPRAZOLE RX [Suspect]
     Active Substance: OMEPRAZOLE
     Indication: DYSPEPSIA
     Route: 065
     Dates: start: 202010

REACTIONS (4)
  - Myalgia [Recovering/Resolving]
  - Heart rate increased [Not Recovered/Not Resolved]
  - Arthralgia [Recovering/Resolving]
  - Dyspnoea [Recovering/Resolving]
